FAERS Safety Report 7812185-5 (Version None)
Quarter: 2011Q4

REPORT INFORMATION
  Report Type: 
  Country: None (occurrence: None)
  Receive Date: 20111013
  Receipt Date: 20111007
  Transmission Date: 20120403
  Serious: No
  Sender: FDA-Public Use
  Company Number: US-B.I. PHARMACEUTICALS,INC./RIDGEFIELD-2011-BP-13802BP

PATIENT
  Sex: Female

DRUGS (16)
  1. HYDROCHLOROTHIAZIDE [Concomitant]
     Indication: OEDEMA
  2. GLUCOTROL [Concomitant]
     Indication: DIABETES MELLITUS
     Dosage: 0.5 MG
     Route: 048
  3. RESTORIL [Concomitant]
  4. LISINOPRIL [Concomitant]
     Indication: HYPERTENSION
     Dosage: 40 MG
     Dates: start: 20100101
  5. DIGOXIN [Concomitant]
     Indication: ATRIAL FIBRILLATION
     Dosage: 125 MG
     Route: 048
  6. SYNTHROID [Concomitant]
     Indication: HYPOTHYROIDISM
     Dosage: 50 MG
     Route: 048
  7. METOPROLOL SUCCINATE EXTENDED RELEASE [Concomitant]
     Indication: HYPERTENSION
     Dosage: 200 MG
     Route: 048
     Dates: start: 20100101
  8. LEVOTHYROXINE SODIUM [Concomitant]
     Indication: HYPOTHYROIDISM
     Dates: start: 20070101
  9. PRADAXA [Suspect]
     Indication: ATRIAL FIBRILLATION
     Dosage: 300 MG
     Route: 048
     Dates: start: 20110301
  10. ERYTHROMYCIN [Suspect]
     Indication: BRONCHITIS
     Dosage: 250 MG
     Route: 048
     Dates: start: 20110529, end: 20110607
  11. HYDROCHLOROTHIAZIDE [Concomitant]
     Indication: HYPERTENSION
     Dosage: 25 MG
     Route: 048
     Dates: start: 20040101
  12. LEVOXYL [Concomitant]
     Indication: HYPOTHYROIDISM
     Dosage: 50 MCG
     Route: 048
  13. TEMAZEPAM [Concomitant]
     Indication: INSOMNIA
     Route: 048
  14. CALCIUM CARBONATE [Concomitant]
     Route: 048
  15. DIAZEPAM [Concomitant]
     Indication: ANXIETY
     Dosage: 5 MG
     Route: 048
  16. VITAMIN TAB [Concomitant]
     Route: 048

REACTIONS (5)
  - RASH [None]
  - URTICARIA [None]
  - URINARY INCONTINENCE [None]
  - TONGUE PRURITUS [None]
  - DIARRHOEA [None]
